FAERS Safety Report 10206265 (Version 2)
Quarter: 2014Q2

REPORT INFORMATION
  Report Type: Spontaneous
  Country: DE (occurrence: DE)
  Receive Date: 20140530
  Receipt Date: 20140530
  Transmission Date: 20141212
  Serious: Yes (Other)
  Sender: FDA-Public Use
  Company Number: DE-JNJFOC-20140503163

PATIENT
  Age: 45 Year
  Sex: Male

DRUGS (2)
  1. XARELTO [Suspect]
     Indication: VENOUS THROMBOSIS
     Route: 048
     Dates: start: 20140115, end: 20140213
  2. NOVAMINSULFON [Concomitant]
     Indication: ARTHRALGIA
     Route: 065
     Dates: start: 20140116

REACTIONS (1)
  - Venous thrombosis limb [Recovered/Resolved]
